FAERS Safety Report 7532811-8 (Version None)
Quarter: 2011Q2

REPORT INFORMATION
  Report Type: 
  Country: None (occurrence: None)
  Receive Date: 20110608
  Receipt Date: 20110531
  Transmission Date: 20111010
  Serious: Yes (Other)
  Sender: FDA-Public Use
  Company Number: D0071597A

PATIENT
  Sex: Male

DRUGS (3)
  1. NARATRIPTAN [Suspect]
     Dosage: 25MG SINGLE DOSE
     Route: 048
     Dates: start: 20110501
  2. IBUPROFEN [Suspect]
     Dosage: 7200MG SINGLE DOSE
     Route: 048
     Dates: start: 20110501
  3. LORAZEPAM [Suspect]
     Dosage: 5UNIT SINGLE DOSE
     Route: 048
     Dates: start: 20110501

REACTIONS (3)
  - SOMNOLENCE [None]
  - SUICIDE ATTEMPT [None]
  - INTENTIONAL OVERDOSE [None]
